FAERS Safety Report 7645103-3 (Version None)
Quarter: 2011Q3

REPORT INFORMATION
  Report Type: 
  Country: None (occurrence: None)
  Receive Date: 20110729
  Receipt Date: 20110722
  Transmission Date: 20111222
  Serious: Yes (Hospitalization, Other)
  Sender: FDA-Public Use
  Company Number: PHHY2011DE24889

PATIENT
  Sex: Female
  Weight: 56 kg

DRUGS (8)
  1. ZOMETA [Suspect]
     Indication: BONE DISORDER
     Dosage: 4 MG, EVERY 4 WEEKS
     Route: 042
     Dates: start: 20091103, end: 20101103
  2. PACLITAXEL [Concomitant]
     Indication: BREAST CANCER METASTATIC
     Dosage: 80 MG, PER DAY
     Route: 042
     Dates: start: 20101103
  3. PROTHYRID [Concomitant]
     Indication: HYPOTHYROIDISM
     Dosage: UNK
     Dates: start: 19760101
  4. IBUPROFEN [Concomitant]
     Dosage: 400 MG, PRN
     Dates: start: 20101101, end: 20101101
  5. ZOMETA [Suspect]
     Dosage: 4 MG, EVERY 4 WEEKS
     Route: 042
     Dates: start: 20110202, end: 20110202
  6. FRAGMIN [Concomitant]
     Route: 058
  7. MOVIPREP [Concomitant]
     Dosage: 2 DF,/ DAY
     Route: 048
     Dates: start: 20101101, end: 20101101
  8. BEVACIZUMAB [Concomitant]
     Indication: BREAST CANCER METASTATIC
     Dosage: UNK UKN, UNK
     Dates: start: 20101103

REACTIONS (12)
  - BONE DISORDER [None]
  - METASTASES TO BONE [None]
  - ALOPECIA [None]
  - NEOPLASM MALIGNANT [None]
  - CONSTIPATION [None]
  - NAUSEA [None]
  - NEOPLASM PROGRESSION [None]
  - ABDOMINAL PAIN [None]
  - TOOTH ABSCESS [None]
  - METASTASES TO LIVER [None]
  - FATIGUE [None]
  - WOUND DEHISCENCE [None]
